FAERS Safety Report 24596138 (Version 2)
Quarter: 2025Q1

REPORT INFORMATION
  Report Type: Spontaneous
  Country: GB (occurrence: GB)
  Receive Date: 20241110
  Receipt Date: 20250218
  Transmission Date: 20250409
  Serious: Yes (Hospitalization)
  Sender: AUROBINDO
  Company Number: GB-AUROBINDO-AUR-APL-2024-054767

PATIENT
  Age: 58 Year
  Sex: Male

DRUGS (7)
  1. QUETIAPINE [Suspect]
     Active Substance: QUETIAPINE
     Indication: Schizophrenia
     Route: 065
  2. QUETIAPINE [Suspect]
     Active Substance: QUETIAPINE
     Route: 065
  3. ARIPIPRAZOLE [Suspect]
     Active Substance: ARIPIPRAZOLE
     Indication: Schizophrenia
     Route: 065
  4. LURASIDONE [Suspect]
     Active Substance: LURASIDONE
     Indication: Schizophrenia
     Route: 065
  5. VALPROATE SODIUM [Suspect]
     Active Substance: VALPROATE SODIUM
     Indication: Schizophrenia
     Route: 065
  6. VORTIOXETINE [Suspect]
     Active Substance: VORTIOXETINE
     Indication: Schizophrenia
     Route: 065
  7. CLOZAPINE [Concomitant]
     Active Substance: CLOZAPINE
     Indication: Schizophrenia
     Dosage: 200 MILLIGRAM, TWO TIMES A DAY
     Route: 065

REACTIONS (2)
  - Drug ineffective [Unknown]
  - Therapy partial responder [Unknown]
